FAERS Safety Report 24451024 (Version 6)
Quarter: 2025Q1

REPORT INFORMATION
  Report Type: Spontaneous
  Country: AU (occurrence: AU)
  Receive Date: 20241017
  Receipt Date: 20250326
  Transmission Date: 20250408
  Serious: Yes (Hospitalization, Other)
  Sender: SANOFI AVENTIS
  Company Number: AU-SA-2024SA298155

PATIENT
  Age: 81 Year
  Sex: Male

DRUGS (3)
  1. DUPIXENT [Suspect]
     Active Substance: DUPILUMAB
     Indication: Dermatitis atopic
     Dates: start: 20240923, end: 20240923
  2. DUPIXENT [Suspect]
     Active Substance: DUPILUMAB
     Indication: Neurodermatitis
     Dates: start: 20241007
  3. RINVOQ [Concomitant]
     Active Substance: UPADACITINIB

REACTIONS (21)
  - Shock [Unknown]
  - Rash erythematous [Unknown]
  - Inflammation [Recovered/Resolved]
  - Hepatic enzyme increased [Recovered/Resolved]
  - Staphylococcal infection [Unknown]
  - Monocytosis [Unknown]
  - Cellulitis [Unknown]
  - Rash maculo-papular [Unknown]
  - Viral infection [Unknown]
  - Hypersensitivity [Unknown]
  - Night sweats [Unknown]
  - Tremor [Unknown]
  - Rash [Unknown]
  - Injection site rash [Unknown]
  - Anaemia [Unknown]
  - Blood test abnormal [Recovered/Resolved]
  - Influenza like illness [Unknown]
  - Cough [Unknown]
  - Pyrexia [Recovered/Resolved]
  - Chills [Recovered/Resolved]
  - Emotional distress [Unknown]

NARRATIVE: CASE EVENT DATE: 20240101
